FAERS Safety Report 19688656 (Version 1)
Quarter: 2021Q3

REPORT INFORMATION
  Report Type: Spontaneous
  Country: US (occurrence: US)
  Receive Date: 20210811
  Receipt Date: 20210811
  Transmission Date: 20211014
  Serious: No
  Sender: FDA-Public Use
  Company Number: US-SA-2021SA262062

PATIENT
  Sex: Female

DRUGS (4)
  1. INH [Concomitant]
     Active Substance: ISONIAZID
  2. INCRUSE ELLIPTA [Concomitant]
     Active Substance: UMECLIDINIUM BROMIDE
  3. MONTELUKAST [Concomitant]
     Active Substance: MONTELUKAST SODIUM
  4. DUPIXENT [Suspect]
     Active Substance: DUPILUMAB
     Indication: NASAL POLYPS
     Dosage: 300 MG, QOW
     Route: 058
     Dates: start: 20200421

REACTIONS (2)
  - Limb discomfort [Not Recovered/Not Resolved]
  - Muscular weakness [Not Recovered/Not Resolved]
